FAERS Safety Report 11642926 (Version 1)
Quarter: 2015Q4

REPORT INFORMATION
  Report Type: Spontaneous
  Country: JP (occurrence: JP)
  Receive Date: 20151020
  Receipt Date: 20151020
  Transmission Date: 20160304
  Serious: Yes (Other)
  Sender: FDA-Public Use
  Company Number: PHJP2015JP017852

PATIENT

DRUGS (1)
  1. TEGRETOL [Suspect]
     Active Substance: CARBAMAZEPINE
     Indication: PRODUCT USED FOR UNKNOWN INDICATION
     Dosage: 200 MG, QD AFTER DINNER
     Route: 048

REACTIONS (4)
  - Platelet count decreased [Unknown]
  - General physical health deterioration [Unknown]
  - Pyrexia [Unknown]
  - White blood cell count decreased [Unknown]
